FAERS Safety Report 25324919 (Version 1)
Quarter: 2025Q2

REPORT INFORMATION
  Report Type: Spontaneous
  Country: US (occurrence: US)
  Receive Date: 20250516
  Receipt Date: 20250516
  Transmission Date: 20250716
  Serious: Yes (Death, Other)
  Sender: BLUEPRINT MEDICINES
  Company Number: US-Blueprint Medicines Corporation-2025-AER-00997

PATIENT

DRUGS (2)
  1. AYVAKIT [Suspect]
     Active Substance: AVAPRITINIB
     Indication: Advanced systemic mastocytosis
     Route: 065
  2. DECITABINE [Concomitant]
     Active Substance: DECITABINE
     Indication: Advanced systemic mastocytosis
     Route: 065

REACTIONS (2)
  - Disease progression [Fatal]
  - Bone marrow transplant [Unknown]

NARRATIVE: CASE EVENT DATE: 20230101
